FAERS Safety Report 8874862 (Version 1)
Quarter: 2012Q4

REPORT INFORMATION
  Report Type: 
  Country: US (occurrence: US)
  Receive Date: 20121026
  Receipt Date: 20121026
  Transmission Date: 20130627
  Serious: No
  Sender: FDA-Public Use
  Company Number: US-AMGEN-USASP2012042524

PATIENT
  Age: 51 Year
  Sex: Female
  Weight: 43.08 kg

DRUGS (4)
  1. ENBREL [Suspect]
     Indication: PRODUCT USED FOR UNKNOWN INDICATION
     Dosage: 50 mg, qwk
     Route: 058
  2. LASIX                              /00032601/ [Concomitant]
     Dosage: 20 mg, UNK
  3. PRILOSEC                           /00661201/ [Concomitant]
     Dosage: 10 mg, UNK
  4. POTASSIUM [Concomitant]
     Dosage: 75 mg, UNK

REACTIONS (1)
  - Oedema peripheral [Recovered/Resolved]
